APPROVED DRUG PRODUCT: MORPHINE SULFATE
Active Ingredient: MORPHINE SULFATE
Strength: 20MG/5ML
Dosage Form/Route: SOLUTION;ORAL
Application: A205509 | Product #002
Applicant: ANI PHARMACEUTICALS INC
Approved: Apr 17, 2018 | RLD: No | RS: No | Type: DISCN